FAERS Safety Report 14171579 (Version 1)
Quarter: 2017Q4

REPORT INFORMATION
  Report Type: Spontaneous
  Country: US (occurrence: US)
  Receive Date: 20171108
  Receipt Date: 20171108
  Transmission Date: 20180321
  Serious: Yes (Hospitalization)
  Sender: FDA-Public Use
  Company Number: US-BEH-2017084870

PATIENT
  Age: 84 Year
  Sex: Female
  Weight: 57.6 kg

DRUGS (22)
  1. RUCONEST [Concomitant]
     Active Substance: HUMAN C1-ESTERASE INHIBITOR
  2. FLUTICASONE FUROATE [Concomitant]
     Active Substance: FLUTICASONE FUROATE
  3. SYNTHROID [Concomitant]
     Active Substance: LEVOTHYROXINE SODIUM
  4. DANAZOL. [Concomitant]
     Active Substance: DANAZOL
  5. OXYGEN. [Concomitant]
     Active Substance: OXYGEN
  6. FIRAZYR [Concomitant]
     Active Substance: ICATIBANT ACETATE
  7. RENVELA [Concomitant]
     Active Substance: SEVELAMER CARBONATE
  8. PROAIR HFA [Concomitant]
     Active Substance: ALBUTEROL SULFATE
  9. SYMBICORT [Concomitant]
     Active Substance: BUDESONIDE\FORMOTEROL FUMARATE DIHYDRATE
  10. TYLENOL ARTHRITIS PAIN [Concomitant]
     Active Substance: ACETAMINOPHEN
  11. BERINERT [Suspect]
     Active Substance: HUMAN C1-ESTERASE INHIBITOR
     Indication: HEREDITARY ANGIOEDEMA
     Dosage: 1000 IU, UNK
     Route: 042
     Dates: start: 20170629
  12. SPIRIVA [Concomitant]
     Active Substance: TIOTROPIUM BROMIDE MONOHYDRATE
  13. BERINERT [Suspect]
     Active Substance: HUMAN C1-ESTERASE INHIBITOR
     Dosage: UNK
     Route: 042
  14. PANTOPRAZOLE [Concomitant]
     Active Substance: PANTOPRAZOLE
  15. ATENOLOL. [Concomitant]
     Active Substance: ATENOLOL
  16. SUCRALFATE. [Concomitant]
     Active Substance: SUCRALFATE
  17. CALCITRIOL. [Concomitant]
     Active Substance: CALCITRIOL
  18. LETROZOLE. [Concomitant]
     Active Substance: LETROZOLE
  19. CINRYZE [Concomitant]
     Active Substance: HUMAN C1-ESTERASE INHIBITOR
  20. MUCINEX [Concomitant]
     Active Substance: GUAIFENESIN
  21. ALBUTEROL                          /00139501/ [Concomitant]
     Active Substance: ALBUTEROL
  22. HYDRALAZINE [Concomitant]
     Active Substance: HYDRALAZINE HYDROCHLORIDE

REACTIONS (1)
  - Dyspnoea [Unknown]
